FAERS Safety Report 23665380 (Version 4)
Quarter: 2024Q2

REPORT INFORMATION
  Report Type: Report from Study
  Country: ES (occurrence: ES)
  Receive Date: 20240323
  Receipt Date: 20240529
  Transmission Date: 20240716
  Serious: Yes (Other)
  Sender: FDA-Public Use
  Company Number: ES-ABBVIE-5459446

PATIENT
  Sex: Male
  Weight: 60 kg

DRUGS (10)
  1. CARBIDOPA\LEVODOPA [Suspect]
     Active Substance: CARBIDOPA\LEVODOPA
     Indication: Parkinson^s disease
     Route: 050
     Dates: start: 20180712, end: 20231108
  2. CARBIDOPA\LEVODOPA [Suspect]
     Active Substance: CARBIDOPA\LEVODOPA
     Dosage: MORNING DOSE 5ML, CONTINUOUS DOSE 4.2ML/H, EXTRA DOSE 4.5 ML
     Route: 050
     Dates: start: 20231108, end: 20231114
  3. CARBIDOPA\LEVODOPA [Suspect]
     Active Substance: CARBIDOPA\LEVODOPA
     Dosage: CONTINUOUS DOSE 4ML/H
     Route: 050
     Dates: start: 20231114, end: 202311
  4. CARBIDOPA\LEVODOPA [Suspect]
     Active Substance: CARBIDOPA\LEVODOPA
     Dosage: CONTINUOUS DOSE DECREASED BY 0.1 ML/H
     Route: 050
     Dates: start: 202311, end: 202403
  5. CARBIDOPA\LEVODOPA [Suspect]
     Active Substance: CARBIDOPA\LEVODOPA
     Dosage: DOSE INCREASE, IN THE MORNING 3.5 AND IN THE AFTERNOON 3.9.
     Route: 050
     Dates: start: 202403
  6. SERTRALINE [Concomitant]
     Active Substance: SERTRALINE HYDROCHLORIDE
     Indication: Product used for unknown indication
     Dates: start: 2023
  7. ENALAPRIL [Suspect]
     Active Substance: ENALAPRIL
     Indication: Product used for unknown indication
     Route: 065
  8. VITAMIN B12 [Concomitant]
     Active Substance: CYANOCOBALAMIN
     Indication: Vitamin B12 deficiency
     Dates: start: 2023
  9. COVID-19 vaccine [Concomitant]
     Indication: COVID-19 immunisation
     Dosage: COVID VACCINE, ONE IN ONCE
     Route: 030
     Dates: start: 2023, end: 2023
  10. INFLUENZA VIRUS VACCINE [Concomitant]
     Active Substance: INFLUENZA VIRUS VACCINE
     Indication: Antiviral prophylaxis
     Dates: start: 2023, end: 2023

REACTIONS (25)
  - Hernia [Unknown]
  - Pyrexia [Unknown]
  - On and off phenomenon [Not Recovered/Not Resolved]
  - Taste disorder [Unknown]
  - Abdominal discomfort [Unknown]
  - Thinking abnormal [Unknown]
  - Dyskinesia [Not Recovered/Not Resolved]
  - General physical health deterioration [Unknown]
  - Disturbance in attention [Unknown]
  - Intervertebral disc protrusion [Not Recovered/Not Resolved]
  - Restlessness [Unknown]
  - Therapeutic product effect incomplete [Unknown]
  - Decreased appetite [Unknown]
  - Weight decreased [Not Recovered/Not Resolved]
  - Asthenia [Unknown]
  - Hypotension [Unknown]
  - Vitamin B12 deficiency [Unknown]
  - Apathy [Unknown]
  - Depressed mood [Recovering/Resolving]
  - Device dislocation [Recovered/Resolved]
  - Prostatic disorder [Unknown]
  - Unevaluable event [Unknown]
  - Malaise [Unknown]
  - Pain in extremity [Recovered/Resolved]
  - Prostatitis [Unknown]

NARRATIVE: CASE EVENT DATE: 20230101
